FAERS Safety Report 4517138-0 (Version None)
Quarter: 2005Q1

REPORT INFORMATION
  Report Type: 
  Country: None (occurrence: None)
  Receive Date: 20041005
  Receipt Date: 20040524
  Transmission Date: 20050727
  Serious: Yes (Other)
  Sender: FDA-Public Use
  Company Number: PHEH2004US05750

PATIENT
  Age: 52 Year
  Sex: Female

DRUGS (1)
  1. ESTALIS COMBIPATCH (ESTRADIOL, NORETHISTERONE ACETATE)MATRIX TRANS THE [Suspect]
     Indication: MENOPAUSAL SYMPTOMS
     Dosage: 0.05/0.14 MG/DAY, QW2, TRANSDERMA
     Route: 062

REACTIONS (1)
  - BLOOD PRESSURE INCREASED [None]
